FAERS Safety Report 10228597 (Version 3)
Quarter: 2015Q1

REPORT INFORMATION
  Report Type: Spontaneous
  Country: US (occurrence: US)
  Receive Date: 20140610
  Receipt Date: 20150327
  Transmission Date: 20150720
  Serious: Yes (Hospitalization, Other)
  Sender: FDA-Public Use
  Company Number: US-BAYER-2014-084838

PATIENT
  Age: 27 Year
  Sex: Female
  Weight: 109 kg

DRUGS (12)
  1. OCELLA [Suspect]
     Active Substance: DROSPIRENONE\ETHINYL ESTRADIOL
     Indication: CONTRACEPTION
     Dosage: UNK
     Dates: start: 2008, end: 201002
  2. MUCINEX [Concomitant]
     Active Substance: GUAIFENESIN
  3. YASMIN [Suspect]
     Active Substance: DROSPIRENONE\ETHINYL ESTRADIOL
     Indication: CONTRACEPTION
     Dosage: UNK
     Dates: start: 2008, end: 201002
  4. VICODIN [Concomitant]
     Active Substance: ACETAMINOPHEN\HYDROCODONE BITARTRATE
     Indication: DYSMENORRHOEA
     Dosage: UNK
     Dates: start: 2010, end: 2014
  5. ALBUTEROL. [Concomitant]
     Active Substance: ALBUTEROL
     Indication: DYSPNOEA
  6. ADVAIR HFA [Concomitant]
     Active Substance: FLUTICASONE PROPIONATE\SALMETEROL XINAFOATE
     Indication: DYSPNOEA
     Dosage: UNK
  7. CLARITHROMYCIN. [Concomitant]
     Active Substance: CLARITHROMYCIN
     Dosage: 500 MG, BID
     Dates: start: 20100208
  8. RELPAX [Concomitant]
     Active Substance: ELETRIPTAN HYDROBROMIDE
     Dosage: 40 MG, UNK
  9. ALBUTEROL. [Concomitant]
     Active Substance: ALBUTEROL
     Indication: ASTHMA
     Dosage: UNK
  10. FLEXERIL [Concomitant]
     Active Substance: CYCLOBENZAPRINE HYDROCHLORIDE
     Indication: MUSCLE SPASMS
     Dosage: UNK
     Dates: start: 2009
  11. PERCOCET [Concomitant]
     Active Substance: ACETAMINOPHEN\OXYCODONE HYDROCHLORIDE
     Indication: HEADACHE
     Dosage: UNK
     Dates: start: 2010
  12. IBUPROFEN. [Concomitant]
     Active Substance: IBUPROFEN
     Dosage: UNK
     Dates: start: 20100223

REACTIONS (14)
  - Paranasal sinus discomfort [Recovered/Resolved]
  - Emotional disorder [None]
  - Sinus headache [Recovered/Resolved]
  - Pain [None]
  - Injury [Recovered/Resolved]
  - Anxiety [None]
  - Marital problem [None]
  - Intracranial venous sinus thrombosis [Recovered/Resolved]
  - Emotional distress [None]
  - Abdominal pain [None]
  - General physical health deterioration [Recovered/Resolved]
  - Pain [Recovered/Resolved]
  - Thrombosis [None]
  - Depression [None]

NARRATIVE: CASE EVENT DATE: 20100223
